FAERS Safety Report 10018271 (Version 1)
Quarter: 2014Q1

REPORT INFORMATION
  Report Type: Spontaneous
  Country: US (occurrence: US)
  Receive Date: 20140318
  Receipt Date: 20140318
  Transmission Date: 20141002
  Serious: Yes (Other)
  Sender: FDA-Public Use
  Company Number: US-BRISTOL-MYERS SQUIBB COMPANY-19826775

PATIENT
  Age: 50 Year
  Sex: Female

DRUGS (2)
  1. ERBITUX [Suspect]
  2. HYDROCORTISONE [Concomitant]

REACTIONS (1)
  - Vital functions abnormal [Unknown]
